FAERS Safety Report 7298662-7 (Version None)
Quarter: 2011Q1

REPORT INFORMATION
  Report Type: 
  Country: None (occurrence: None)
  Receive Date: 20110217
  Receipt Date: 20110215
  Transmission Date: 20110831
  Serious: Yes (Life-Threatening, Other)
  Sender: FDA-Public Use
  Company Number: CA-JNJFOC-20110202973

PATIENT
  Sex: Female
  Weight: 72.58 kg

DRUGS (10)
  1. CLOPIXOL DEPOT [Suspect]
     Indication: SCHIZOPHRENIA
     Route: 065
  2. RISPERDAL [Suspect]
     Indication: SCHIZOPHRENIA
     Route: 048
  3. PERPHENAZINE [Concomitant]
     Indication: SCHIZOPHRENIA
     Dosage: VARIES (8 MG 3 TID TO 4 MG BID/ 20 MG Q HR)
     Route: 065
  4. RISPERDAL [Suspect]
     Route: 048
  5. CARBAMAZEPINE [Concomitant]
     Indication: SCHIZOPHRENIA
     Dosage: 200 NG EVERY AM/ 400 MG EVERY HR
     Route: 065
  6. RISPERDAL CONSTA [Suspect]
     Indication: SCHIZOPHRENIA
     Route: 065
  7. HALDOL [Suspect]
     Indication: SCHIZOPHRENIA
     Dosage: 5 MG/ OD/PO
     Route: 048
  8. ZYPREXA [Suspect]
     Indication: SCHIZOPHRENIA
     Route: 065
  9. RISPERDAL [Suspect]
     Route: 048
  10. CLOPIXOL ACCUPHASE [Suspect]
     Indication: SCHIZOPHRENIA
     Route: 065

REACTIONS (2)
  - PITUITARY TUMOUR [None]
  - TREATMENT NONCOMPLIANCE [None]
